FAERS Safety Report 15429580 (Version 1)
Quarter: 2018Q3

REPORT INFORMATION
  Report Type: Spontaneous
  Country: US (occurrence: US)
  Receive Date: 20180920
  Receipt Date: 20180920
  Transmission Date: 20181010
  Serious: Yes (Life-Threatening, Hospitalization, Disabling, Other)
  Sender: FDA-Public Use
  Company Number: None

PATIENT
  Age: 76 Year
  Sex: Male
  Weight: 70 kg

DRUGS (8)
  1. SENNA 8.6MG [Concomitant]
  2. MELOXICAM 7.5MG [Concomitant]
     Active Substance: MELOXICAM
  3. AMLODIPINE/BENAZEPRIL 10MG/20MG [Concomitant]
  4. ONDANSETRON 8MG [Concomitant]
     Active Substance: ONDANSETRON
  5. HYDROCHLOROTHIAZIDE 12.5MG [Concomitant]
     Active Substance: HYDROCHLOROTHIAZIDE
  6. VITAMIN D3 1000IU [Concomitant]
  7. KEYTRUDA [Suspect]
     Active Substance: PEMBROLIZUMAB
     Indication: MALIGNANT MELANOMA STAGE IV
     Route: 041
     Dates: start: 20180802, end: 20180823
  8. CALCIUM/VITAMIN D [Concomitant]
     Active Substance: CALCIUM\VITAMIN D

REACTIONS (12)
  - Asthenia [None]
  - Cardiac arrest [None]
  - Diplopia [None]
  - Neck pain [None]
  - Autoimmune hepatitis [None]
  - Respiratory failure [None]
  - Malaise [None]
  - Myasthenia gravis [None]
  - Decreased appetite [None]
  - General physical health deterioration [None]
  - Spinal pain [None]
  - Gait disturbance [None]

NARRATIVE: CASE EVENT DATE: 20180828
